FAERS Safety Report 5473237-0 (Version None)
Quarter: 2007Q4

REPORT INFORMATION
  Report Type: 
  Country: None (occurrence: None)
  Receive Date: 20071001
  Receipt Date: 20070918
  Transmission Date: 20080405
  Serious: Yes (Other)
  Sender: FDA-Public Use
  Company Number: JP-ROCHE-520534

PATIENT
  Age: 51 Year
  Sex: Male

DRUGS (2)
  1. COPEGUS [Suspect]
     Route: 048
     Dates: start: 20070907
  2. PEGASYS [Suspect]
     Route: 058
     Dates: start: 20070907

REACTIONS (1)
  - HAEMOLYSIS [None]
